FAERS Safety Report 6610341-5 (Version None)
Quarter: 2010Q1

REPORT INFORMATION
  Report Type: 
  Country: None (occurrence: None)
  Receive Date: 20100302
  Receipt Date: 20100226
  Transmission Date: 20100710
  Serious: Yes (Life-Threatening, Hospitalization, Other)
  Sender: FDA-Public Use
  Company Number: GXKR2010DE02349

PATIENT
  Age: 45 Year
  Sex: Female
  Weight: 91 kg

DRUGS (4)
  1. MIRTAZAPINE [Suspect]
     Dosage: 30 MG, QD
     Dates: start: 20100206, end: 20100206
  2. CARBIDOPA AND LEVODOPA [Concomitant]
  3. TORASEMIDE [Concomitant]
  4. PHENPROCOUMON [Concomitant]

REACTIONS (1)
  - LONG QT SYNDROME [None]
